FAERS Safety Report 20195569 (Version 2)
Quarter: 2022Q1

REPORT INFORMATION
  Report Type: Spontaneous
  Country: US (occurrence: None)
  Receive Date: 20211216
  Receipt Date: 20220218
  Transmission Date: 20220423
  Serious: Yes (Other)
  Sender: FDA-Public Use
  Company Number: 2021A864337

PATIENT
  Age: 727 Month
  Sex: Female
  Weight: 58.7 kg

DRUGS (5)
  1. LYNPARZA [Suspect]
     Active Substance: OLAPARIB
     Indication: Ovarian cancer
     Dosage: 600.0MG UNKNOWN
     Route: 048
     Dates: start: 20200608, end: 20211124
  2. LYNPARZA [Suspect]
     Active Substance: OLAPARIB
     Indication: BRCA1 gene mutation
     Dosage: 600.0MG UNKNOWN
     Route: 048
     Dates: start: 20200608, end: 20211124
  3. TAXOL [Concomitant]
     Active Substance: PACLITAXEL
     Dates: start: 20200220, end: 20200605
  4. ALBUTEROL [Concomitant]
     Active Substance: ALBUTEROL
     Indication: Asthma
     Dosage: UNKNOWN DOSE AS NEEDED
  5. CARBOPLATIN [Concomitant]
     Active Substance: CARBOPLATIN
     Dates: start: 20200220, end: 20200605

REACTIONS (2)
  - Pneumonitis [Recovered/Resolved]
  - Cough [Unknown]

NARRATIVE: CASE EVENT DATE: 20211101
